FAERS Safety Report 7633781-4 (Version None)
Quarter: 2011Q3

REPORT INFORMATION
  Report Type: 
  Country: None (occurrence: None)
  Receive Date: 20110714
  Receipt Date: 20101111
  Transmission Date: 20111222
  Serious: Yes (Hospitalization)
  Sender: FDA-Public Use
  Company Number: 2010SP059743

PATIENT
  Age: 80 Year
  Sex: Male

DRUGS (1)
  1. INTEGRILIN [Suspect]
     Indication: PERCUTANEOUS CORONARY INTERVENTION
     Dosage: 180 MCG/KG; INBO
     Route: 040

REACTIONS (1)
  - GASTROINTESTINAL HAEMORRHAGE [None]
